FAERS Safety Report 4587549-6 (Version None)
Quarter: 2005Q1

REPORT INFORMATION
  Report Type: 
  Country: None (occurrence: None)
  Receive Date: 20050125
  Receipt Date: 20040917
  Transmission Date: 20050727
  Serious: No
  Sender: FDA-Public Use
  Company Number: USA040977095

PATIENT
  Age: 81 Year
  Sex: Female
  Weight: 57 kg

DRUGS (6)
  1. FORTEO [Suspect]
     Indication: OSTEOPOROSIS
     Dosage: 20 UG/1 DAY
     Dates: start: 20040830, end: 20040831
  2. BEXTRA [Concomitant]
  3. DIGOXIN [Concomitant]
  4. POTASSIUM CHLORIDE [Concomitant]
  5. VITAMINS NOS [Concomitant]
  6. FOSAMAX [Concomitant]

REACTIONS (3)
  - DIFFICULTY IN WALKING [None]
  - DIZZINESS [None]
  - NAUSEA [None]
